FAERS Safety Report 6901054-0 (Version None)
Quarter: 2010Q3

REPORT INFORMATION
  Report Type: 
  Country: None (occurrence: None)
  Receive Date: 20100730
  Receipt Date: 20100716
  Transmission Date: 20110219
  Serious: Yes (Other)
  Sender: FDA-Public Use
  Company Number: DSJ-2010-11954

PATIENT
  Age: 75 Year
  Sex: Female

DRUGS (4)
  1. BENICAR HCT [Suspect]
     Indication: HYPERTENSION
     Dosage: 40/25MG (1 IN 1 D), PER ORAL
     Route: 048
     Dates: start: 20070525
  2. INSULIN (INSULIN) (INSULIN) [Concomitant]
  3. CILOSTAZOL (CILOSTAZOL) (CILOSTAZOL) [Concomitant]
  4. ACETYLSALICYLIC ACID SRT [Concomitant]

REACTIONS (2)
  - DRUG INEFFECTIVE [None]
  - LEG AMPUTATION [None]
